FAERS Safety Report 8456755-2 (Version None)
Quarter: 2012Q2

REPORT INFORMATION
  Report Type: 
  Country: None (occurrence: None)
  Receive Date: 20120621
  Receipt Date: 20120608
  Transmission Date: 20120825
  Serious: Yes (Death, Hospitalization)
  Sender: FDA-Public Use
  Company Number: US-ACTELION-A-NJ2012-62099

PATIENT

DRUGS (16)
  1. ATIVAN [Concomitant]
  2. LACTULOSE [Concomitant]
  3. RIFAXIMIN [Concomitant]
  4. COUMADIN [Concomitant]
  5. POTASSIUM CHLORIDE [Concomitant]
  6. ZINC SULFATE [Concomitant]
  7. FERROUS SULFATE TAB [Concomitant]
  8. TRACLEER [Suspect]
     Indication: PULMONARY ARTERIAL HYPERTENSION
     Dosage: UNK
     Route: 048
     Dates: start: 20100805, end: 20120506
  9. OMEPRAZOLE [Concomitant]
  10. HEPARIN [Suspect]
     Dosage: UNK
     Dates: start: 20120301
  11. LASIX [Concomitant]
  12. KEPPRA [Concomitant]
  13. FOSAMAX [Concomitant]
  14. METOPROLOL [Concomitant]
  15. MAGNESIUM [Concomitant]
  16. CALCIUM [Concomitant]

REACTIONS (20)
  - ATRIAL FIBRILLATION [None]
  - HEPARIN-INDUCED THROMBOCYTOPENIA [None]
  - CEREBROVASCULAR ACCIDENT [None]
  - DEMENTIA [None]
  - DEATH [None]
  - VOMITING [None]
  - INTESTINAL RESECTION [None]
  - VIRAL INFECTION [None]
  - HEPATIC ENCEPHALOPATHY [None]
  - INTESTINAL ISCHAEMIA [None]
  - NAUSEA [None]
  - ABDOMINAL DISCOMFORT [None]
  - AMMONIA INCREASED [None]
  - ARTERIOVENOUS MALFORMATION [None]
  - ABDOMINAL PAIN [None]
  - GASTROINTESTINAL NECROSIS [None]
  - SMALL INTESTINAL OBSTRUCTION [None]
  - PULMONARY EMBOLISM [None]
  - MENTAL STATUS CHANGES [None]
  - HEPATIC ARTERIOVENOUS MALFORMATION [None]
